FAERS Safety Report 7190038-6 (Version None)
Quarter: 2010Q4

REPORT INFORMATION
  Report Type: 
  Country: None (occurrence: None)
  Receive Date: 20101210
  Receipt Date: 20101210
  Transmission Date: 20110411
  Serious: Yes (Other)
  Sender: FDA-Public Use
  Company Number: 1022556-2010-00080

PATIENT
  Age: 59 Year
  Sex: Female
  Weight: 65.7716 kg

DRUGS (2)
  1. ICY HOT XL BACK PATCH 3 PATCHES [Suspect]
     Indication: MYALGIA
     Dosage: TOPICAL, ONCE
     Route: 061
  2. LEVOTHYROXINE [Concomitant]

REACTIONS (1)
  - APPLICATION SITE VESICLES [None]
